FAERS Safety Report 6219206-4 (Version None)
Quarter: 2009Q2

REPORT INFORMATION
  Report Type: 
  Country: None (occurrence: None)
  Receive Date: 20090609
  Receipt Date: 20090529
  Transmission Date: 20091009
  Serious: Yes (Hospitalization, Other)
  Sender: FDA-Public Use
  Company Number: JP-BRISTOL-MYERS SQUIBB COMPANY-14608905

PATIENT
  Age: 30 Year
  Sex: Male
  Weight: 71 kg

DRUGS (6)
  1. ABILIFY [Suspect]
     Indication: BIPOLAR DISORDER
     Dosage: INTERRUPTED ON 03MAR RESTARTED ON 09MAR-29MAR09:3MG/D 6MG/D:30MAR-15APR 6MGBID:16APR-ONG
     Route: 048
     Dates: start: 20090223
  2. PAXIL [Suspect]
     Indication: BIPOLAR DISORDER
     Dosage: FORM-TABS
     Route: 048
     Dates: start: 20090105
  3. AMOXAN [Suspect]
     Indication: BIPOLAR DISORDER
     Dosage: FORM-CAPS
     Route: 048
     Dates: start: 20090105
  4. TOLEDOMIN [Suspect]
     Indication: BIPOLAR DISORDER
     Dosage: FORM-TABS
     Route: 048
     Dates: start: 20090105
  5. DEPAS [Concomitant]
     Dosage: FORM-TABS
     Dates: start: 20090105
  6. ROHYPNOL [Concomitant]
     Dosage: FORM-TABS
     Dates: start: 20090105

REACTIONS (3)
  - AKATHISIA [None]
  - CONVULSION [None]
  - LOSS OF CONSCIOUSNESS [None]
